FAERS Safety Report 17657793 (Version 3)
Quarter: 2020Q2

REPORT INFORMATION
  Report Type: Report from Study
  Country: US (occurrence: US)
  Receive Date: 20200411
  Receipt Date: 20200611
  Transmission Date: 20200713
  Serious: No
  Sender: FDA-Public Use
  Company Number: NVSC2020US097426

PATIENT
  Age: 76 Year
  Sex: Female

DRUGS (1)
  1. BEOVU [Suspect]
     Active Substance: BROLUCIZUMAB-DBLL
     Indication: PRODUCT USED FOR UNKNOWN INDICATION
     Route: 047

REACTIONS (4)
  - Sneezing [Unknown]
  - Metamorphopsia [Unknown]
  - Hypersensitivity [Unknown]
  - Eye pruritus [Unknown]

NARRATIVE: CASE EVENT DATE: 20200324
